FAERS Safety Report 13748303 (Version 1)
Quarter: 2017Q3

REPORT INFORMATION
  Report Type: Spontaneous
  Country: US (occurrence: US)
  Receive Date: 20170713
  Receipt Date: 20170713
  Transmission Date: 20171127
  Serious: No
  Sender: FDA-Public Use
  Company Number: US-PFIZER INC-2017298684

PATIENT
  Sex: Female

DRUGS (1)
  1. XELJANZ [Suspect]
     Active Substance: TOFACITINIB CITRATE
     Dosage: 5 MG, TWICE A DAY
     Dates: start: 201609

REACTIONS (11)
  - Joint range of motion decreased [Unknown]
  - Pain in extremity [Unknown]
  - Foot deformity [Unknown]
  - Hand deformity [Unknown]
  - Bone pain [Unknown]
  - Tendon pain [Unknown]
  - Nodule [Not Recovered/Not Resolved]
  - Musculoskeletal pain [Unknown]
  - Fatigue [Unknown]
  - Musculoskeletal stiffness [Recovered/Resolved]
  - Arthralgia [Recovering/Resolving]
